FAERS Safety Report 11816153 (Version 2)
Quarter: 2016Q1

REPORT INFORMATION
  Report Type: Spontaneous
  Country: US (occurrence: US)
  Receive Date: 20151209
  Receipt Date: 20160118
  Transmission Date: 20160525
  Serious: Yes (Hospitalization, Other)
  Sender: FDA-Public Use
  Company Number: US-INCYTE CORPORATION-2015IN006369

PATIENT
  Sex: Female
  Weight: 70.75 kg

DRUGS (3)
  1. JAKAFI [Suspect]
     Active Substance: RUXOLITINIB
     Indication: MYELOFIBROSIS
     Dosage: 20 MG, BID
     Route: 048
     Dates: start: 20150512, end: 201511
  2. JAKAFI [Suspect]
     Active Substance: RUXOLITINIB
     Dosage: 20 MG AM AND 10 MG PM
     Dates: start: 2015
  3. ANAGRELIDE [Concomitant]
     Active Substance: ANAGRELIDE
     Indication: PRODUCT USED FOR UNKNOWN INDICATION

REACTIONS (6)
  - Salivary gland mass [Unknown]
  - Infection [Recovering/Resolving]
  - Parotid abscess [Unknown]
  - Platelet count increased [Unknown]
  - Rash [Recovering/Resolving]
  - Parotid gland enlargement [Recovering/Resolving]
